FAERS Safety Report 4805737-8 (Version None)
Quarter: 2005Q4

REPORT INFORMATION
  Report Type: 
  Country: None (occurrence: None)
  Receive Date: 20051021
  Receipt Date: 20051011
  Transmission Date: 20060501
  Serious: Yes (Death)
  Sender: FDA-Public Use
  Company Number: CA-ROCHE-420796

PATIENT
  Age: 48 Year
  Sex: Female

DRUGS (5)
  1. FUZEON [Suspect]
     Route: 058
     Dates: start: 20050607, end: 20051001
  2. TIPRANAVIR [Suspect]
     Route: 048
     Dates: start: 20050607, end: 20051001
  3. VIREAD [Suspect]
     Route: 048
     Dates: start: 20050607, end: 20051001
  4. 3TC [Concomitant]
     Route: 048
     Dates: end: 20051001
  5. MEPRON [Concomitant]
     Route: 048
     Dates: end: 20051001

REACTIONS (1)
  - THROMBOCYTOPENIC PURPURA [None]
